FAERS Safety Report 5341825-8 (Version None)
Quarter: 2007Q2

REPORT INFORMATION
  Report Type: 
  Country: None (occurrence: None)
  Receive Date: 20070529
  Receipt Date: 20070529
  Transmission Date: 20071010
  Serious: Yes (Life-Threatening, Hospitalization)
  Sender: FDA-Public Use
  Company Number: None

PATIENT
  Age: 59 Year
  Sex: Male
  Weight: 81.6475 kg

DRUGS (5)
  1. ERBITUX [Suspect]
     Indication: COLON CANCER METASTATIC
     Dosage: 500 MG QWEEK IV BOLUS
     Route: 040
     Dates: start: 20061101
  2. AVASTIN [Suspect]
     Indication: COLON CANCER METASTATIC
     Dosage: 800MG Q2WEEKS IV DRIP
     Route: 041
     Dates: start: 20070101
  3. CPT-100 [Concomitant]
  4. MAGNESIUM SULFATE [Concomitant]
  5. BENADRYL [Concomitant]

REACTIONS (1)
  - PANCREATITIS [None]
